FAERS Safety Report 18452091 (Version 1)
Quarter: 2020Q4

REPORT INFORMATION
  Report Type: Spontaneous
  Country: US (occurrence: US)
  Receive Date: 20201031
  Receipt Date: 20201031
  Transmission Date: 20210114
  Serious: Yes (Other)
  Sender: FDA-Public Use
  Company Number: None

PATIENT
  Age: 49 Year
  Sex: Female
  Weight: 108 kg

DRUGS (1)
  1. BUPROPION XL [Suspect]
     Active Substance: BUPROPION HYDROCHLORIDE
     Indication: DEPRESSION
     Dosage: ?          QUANTITY:1 TABLET(S);?
     Route: 048
     Dates: start: 20200115, end: 20200211

REACTIONS (9)
  - Condition aggravated [None]
  - Mental disorder [None]
  - Suspected counterfeit product [None]
  - Drug ineffective [None]
  - Withdrawal syndrome [None]
  - Suicidal ideation [None]
  - Product substitution issue [None]
  - Therapeutic response decreased [None]
  - Insurance issue [None]

NARRATIVE: CASE EVENT DATE: 20190211
